FAERS Safety Report 6944387-4 (Version None)
Quarter: 2010Q3

REPORT INFORMATION
  Report Type: 
  Country: None (occurrence: None)
  Receive Date: 20100827
  Receipt Date: 20100818
  Transmission Date: 20110219
  Serious: No
  Sender: FDA-Public Use
  Company Number: US-US-EMD SERONO, INC.-7014887

PATIENT
  Sex: Male
  Weight: 54 kg

DRUGS (16)
  1. SEROSTIM [Suspect]
     Indication: HIV WASTING SYNDROME
     Dates: start: 20100804, end: 20100812
  2. VIDEX EC [Concomitant]
     Dates: start: 20060512
  3. REYATAZ [Concomitant]
     Dates: start: 20060807
  4. NORVIR [Concomitant]
     Route: 048
     Dates: start: 20060512
  5. TRUVADA [Concomitant]
     Dates: start: 20060512
  6. LISINOPRIL [Concomitant]
     Dates: start: 20070330
  7. MULTI-VITAMIN [Concomitant]
     Dates: start: 20070131
  8. VASOTEC [Concomitant]
     Route: 048
     Dates: start: 20060629
  9. GLYBURIDE [Concomitant]
     Dates: start: 20070131
  10. DIDANOSINE [Concomitant]
     Dates: start: 20070613
  11. ATRIPLA [Concomitant]
     Dates: start: 20080125
  12. TRICOR [Concomitant]
     Dates: start: 20080319
  13. JANUVIA [Concomitant]
     Dates: start: 20080326
  14. ANDROGEL [Concomitant]
     Dates: start: 20080521
  15. ISENTRESS [Concomitant]
     Dates: start: 20090930
  16. AVANDAMET [Concomitant]
     Dates: start: 20100324

REACTIONS (1)
  - DIABETES MELLITUS [None]
